FAERS Safety Report 7350168-2 (Version None)
Quarter: 2011Q1

REPORT INFORMATION
  Report Type: 
  Country: None (occurrence: None)
  Receive Date: 20110314
  Receipt Date: 20110303
  Transmission Date: 20110831
  Serious: Yes (Hospitalization)
  Sender: FDA-Public Use
  Company Number: B0699973A

PATIENT
  Age: 42 Year
  Sex: Male

DRUGS (7)
  1. METFORMIN [Concomitant]
  2. GLUCOTROL [Concomitant]
  3. PRINIVIL [Concomitant]
  4. LYRICA [Concomitant]
  5. NEURONTIN [Concomitant]
  6. AVANDIA [Suspect]
     Indication: DIABETES MELLITUS
     Dosage: 4MG PER DAY
     Route: 048
     Dates: start: 20070201, end: 20080301
  7. TENORMIN [Concomitant]

REACTIONS (2)
  - CEREBROVASCULAR ACCIDENT [None]
  - TRANSIENT ISCHAEMIC ATTACK [None]
